FAERS Safety Report 18211433 (Version 1)
Quarter: 2020Q3

REPORT INFORMATION
  Report Type: Spontaneous
  Country: FR (occurrence: FR)
  Receive Date: 20200831
  Receipt Date: 20200831
  Transmission Date: 20201103
  Serious: Yes (Death, Other)
  Sender: FDA-Public Use
  Company Number: FR-BRISTOL-MYERS SQUIBB COMPANY-BMS-2020-068711

PATIENT
  Age: 87 Year
  Sex: Male
  Weight: 70 kg

DRUGS (9)
  1. PREGABALINE [Suspect]
     Active Substance: PREGABALIN
     Indication: PRODUCT USED FOR UNKNOWN INDICATION
     Dosage: 50 MG PER DAY
     Route: 005
  2. NOVORAPID [Suspect]
     Active Substance: INSULIN ASPART
     Indication: DIABETES MELLITUS
     Dosage: 8 INTERNATIONAL UNIT PER DAY
     Route: 058
  3. ELIQUIS [Suspect]
     Active Substance: APIXABAN
     Indication: DEEP VEIN THROMBOSIS
     Dosage: 10 MG PER DAY
     Route: 048
     Dates: end: 20200809
  4. ADENURIC [Suspect]
     Active Substance: FEBUXOSTAT
     Indication: GOUT
     Dosage: 80 MG PER DAY
     Route: 048
     Dates: end: 20200809
  5. CORDARONE [Suspect]
     Active Substance: AMIODARONE HYDROCHLORIDE
     Indication: ATRIAL FIBRILLATION
     Dosage: 200 MG PER DAY
     Route: 048
     Dates: end: 20200809
  6. DIFFU K [Suspect]
     Active Substance: POTASSIUM CHLORIDE
     Indication: PRODUCT USED FOR UNKNOWN INDICATION
     Dosage: 600 MILLIGRAM PER DAY
     Route: 048
  7. FUROSEMIDE ARROW [Suspect]
     Active Substance: FUROSEMIDE
     Indication: HYPERCHOLESTEROLAEMIA
     Dosage: 40 MG PER DAY
     Route: 048
     Dates: end: 20200809
  8. BISOCE [Suspect]
     Active Substance: BISOPROLOL
     Indication: CARDIAC FAILURE
     Dosage: 2.5 MILLIGRAM PER DAY
     Route: 048
     Dates: end: 20200809
  9. ATORVASTATINE ARROW [Suspect]
     Active Substance: ATORVASTATIN
     Indication: HYPERCHOLESTEROLAEMIA
     Dosage: 10 MG PER DAY
     Route: 048
     Dates: end: 20200811

REACTIONS (2)
  - Shock haemorrhagic [Fatal]
  - Haematuria [Fatal]

NARRATIVE: CASE EVENT DATE: 20200807
